FAERS Safety Report 6464348-1 (Version None)
Quarter: 2009Q4

REPORT INFORMATION
  Report Type: 
  Country: None (occurrence: None)
  Receive Date: 20091201
  Receipt Date: 20091118
  Transmission Date: 20100525
  Serious: Yes (Other)
  Sender: FDA-Public Use
  Company Number: US-ELI_LILLY_AND_COMPANY-US200911005062

PATIENT
  Age: 40 Year
  Sex: Female

DRUGS (4)
  1. CYMBALTA [Suspect]
     Indication: MIGRAINE
     Dosage: 60 MG, 2/D
  2. CYMBALTA [Suspect]
     Dosage: 1 D/F, DAILY (1/D)
  3. CYMBALTA [Suspect]
     Dosage: 60 MG, 2/D
  4. NEXIUM [Concomitant]

REACTIONS (3)
  - DIZZINESS [None]
  - OFF LABEL USE [None]
  - VOCAL CORD NEOPLASM [None]
